FAERS Safety Report 8048331-0 (Version None)
Quarter: 2012Q1

REPORT INFORMATION
  Report Type: 
  Country: None (occurrence: None)
  Receive Date: 20120117
  Receipt Date: 20120111
  Transmission Date: 20120608
  Serious: No
  Sender: FDA-Public Use
  Company Number: US-PFIZER INC-2012009428

PATIENT
  Sex: Female

DRUGS (5)
  1. DECADRON [Concomitant]
     Dosage: 20 MG, (DAILY X 4DAYS)
  2. BACTRIM DS [Suspect]
     Dosage: UNK
     Dates: start: 20111025
  3. REVLIMID [Suspect]
     Indication: MULTIPLE MYELOMA
     Dosage: 10 MG, DAILY
     Route: 048
     Dates: start: 20111025
  4. ACYCLOVIR [Suspect]
     Dosage: 400 MG, 2X/DAY (7 DAYS Q 4 WEEKS )
     Dates: start: 20111025
  5. ARMODAFINIL [Suspect]
     Dosage: 100 MG, (X 7 DAYS Q4 WEEKS)
     Dates: start: 20111025

REACTIONS (3)
  - MUSCLE SPASMS [None]
  - DIARRHOEA [None]
  - ABDOMINAL PAIN UPPER [None]
